FAERS Safety Report 8579924-X (Version None)
Quarter: 2012Q3

REPORT INFORMATION
  Report Type: 
  Country: None (occurrence: None)
  Receive Date: 20120808
  Receipt Date: 20120802
  Transmission Date: 20120928
  Serious: Yes (Other)
  Sender: FDA-Public Use
  Company Number: US-B.I. PHARMACEUTICALS,INC./RIDGEFIELD-2012-BP-17420BP

PATIENT
  Age: 81 Year
  Sex: Male

DRUGS (7)
  1. ASPIRIN [Concomitant]
     Indication: CARDIAC DISORDER
  2. SPIRIVA [Suspect]
     Indication: EMPHYSEMA
     Dosage: 18 MCG
     Route: 048
     Dates: start: 20120802, end: 20120802
  3. SPIRIVA [Suspect]
     Dosage: 18 MCG
     Route: 055
     Dates: start: 20100801
  4. LIPITOR [Concomitant]
     Indication: BLOOD CHOLESTEROL INCREASED
  5. FLUTICASONE PROPIONATE [Concomitant]
     Indication: EMPHYSEMA
  6. CALCIUM [Concomitant]
     Indication: VITAMIN SUPPLEMENTATION
  7. VITAMIN B-12 [Concomitant]
     Indication: VITAMIN SUPPLEMENTATION

REACTIONS (2)
  - LUNG NEOPLASM MALIGNANT [None]
  - INCORRECT ROUTE OF DRUG ADMINISTRATION [None]
